FAERS Safety Report 24347261 (Version 1)
Quarter: 2024Q3

REPORT INFORMATION
  Report Type: Spontaneous
  Country: US (occurrence: US)
  Receive Date: 20240921
  Receipt Date: 20240921
  Transmission Date: 20241017
  Serious: No
  Sender: MERCK
  Company Number: US-009507513-2408USA010737

PATIENT
  Age: 15 Year
  Sex: Male

DRUGS (1)
  1. WELIREG [Suspect]
     Active Substance: BELZUTIFAN
     Indication: Von Hippel-Lindau disease
     Dosage: 120 MILLIGRAM, ONCE DAILY
     Route: 048

REACTIONS (3)
  - Fatigue [Unknown]
  - Anaemia [Unknown]
  - Off label use [Unknown]
